FAERS Safety Report 22607193 (Version 1)
Quarter: 2023Q2

REPORT INFORMATION
  Report Type: Report from Study
  Country: US (occurrence: US)
  Receive Date: 20230615
  Receipt Date: 20230615
  Transmission Date: 20230721
  Serious: Yes (Death)
  Sender: FDA-Public Use
  Company Number: US-ABBVIE-5291221

PATIENT
  Age: 73 Year
  Sex: Female

DRUGS (12)
  1. HUMIRA [Suspect]
     Active Substance: ADALIMUMAB
     Indication: Psoriasis
     Dosage: FORM STRENGTH :40 MILLIGRAM
     Route: 058
     Dates: start: 20201221, end: 20230523
  2. AMLODIPINE B TAB 5MG [Concomitant]
     Indication: Product used for unknown indication
  3. DIAZEPAM TAB 5MG [Concomitant]
     Indication: Product used for unknown indication
  4. CITALOPRAM H TAB 40MG [Concomitant]
     Indication: Product used for unknown indication
     Dosage: CITALOPRAM H
  5. IRON TAB 28MG [Concomitant]
     Indication: Product used for unknown indication
  6. FUROSEMIDE TAB 20MG [Concomitant]
     Indication: Product used for unknown indication
  7. OMEPRAZOLE CPD 40MG [Concomitant]
     Indication: Product used for unknown indication
     Dosage: CPD
  8. METOCLOPRAMIDE TAB 5MG [Concomitant]
     Indication: Product used for unknown indication
  9. CHLORTHALIDONE TAB 25MG [Concomitant]
     Indication: Product used for unknown indication
  10. HYDROCODONE TAB 10-325MG [Concomitant]
     Indication: Product used for unknown indication
     Dosage: 10 TO 325MG
  11. ZOLPIDEM TAR TAB 5MG [Concomitant]
     Indication: Product used for unknown indication
  12. VITAMIN D LIQ 10MCG/ML [Concomitant]
     Indication: Product used for unknown indication
     Dosage: LIQ 10MCG/ML

REACTIONS (1)
  - Death [Fatal]

NARRATIVE: CASE EVENT DATE: 20230523
